FAERS Safety Report 4312810-X (Version None)
Quarter: 2004Q1

REPORT INFORMATION
  Report Type: 
  Country: None (occurrence: None)
  Receive Date: 20040304
  Receipt Date: 20040219
  Transmission Date: 20041129
  Serious: Yes (Other)
  Sender: FDA-Public Use
  Company Number: 2002-04695

PATIENT
  Age: 56 Year
  Sex: Female
  Weight: 56 kg

DRUGS (5)
  1. VIREAD [Suspect]
     Indication: HIV INFECTION
     Dosage: 300 MG QD PO
     Route: 048
     Dates: start: 20010505, end: 20020315
  2. EPIVIR [Concomitant]
  3. KALETRA [Concomitant]
  4. SUSTIVA [Concomitant]
  5. LIPANTHYL [Concomitant]

REACTIONS (5)
  - ARTHRALGIA [None]
  - FANCONI SYNDROME ACQUIRED [None]
  - MYALGIA [None]
  - PAIN IN EXTREMITY [None]
  - RENAL TUBULAR DISORDER [None]
